FAERS Safety Report 5332303-0 (Version None)
Quarter: 2007Q2

REPORT INFORMATION
  Report Type: 
  Country: None (occurrence: None)
  Receive Date: 20070523
  Receipt Date: 20070516
  Transmission Date: 20071010
  Serious: Yes (Other)
  Sender: FDA-Public Use
  Company Number: DE-ROCHE-480678

PATIENT
  Age: 49 Year
  Sex: Female
  Weight: 59 kg

DRUGS (1)
  1. BONIVA [Suspect]
     Indication: OSTEOPOROSIS
     Dosage: FORM REPORTED AS SYRINGE. STRENGTH REPORTED AS 3 MG/3 ML.
     Route: 042
     Dates: start: 20061026, end: 20070126

REACTIONS (1)
  - BONE MARROW OEDEMA [None]
